FAERS Safety Report 25008316 (Version 2)
Quarter: 2025Q1

REPORT INFORMATION
  Report Type: Spontaneous
  Country: JP (occurrence: JP)
  Receive Date: 20250225
  Receipt Date: 20250305
  Transmission Date: 20250408
  Serious: Yes (Hospitalization, Other)
  Sender: NOVARTIS
  Company Number: JP-002147023-NVSJ2025JP002443

PATIENT
  Age: 75 Year
  Sex: Male

DRUGS (2)
  1. TAFINLAR [Suspect]
     Active Substance: DABRAFENIB MESYLATE
     Indication: Non-small cell lung cancer stage IV
     Route: 048
  2. MEKINIST [Suspect]
     Active Substance: TRAMETINIB DIMETHYL SULFOXIDE
     Indication: Non-small cell lung cancer stage IV
     Route: 048

REACTIONS (8)
  - Cytokine release syndrome [Recovered/Resolved]
  - Pyrexia [Recovering/Resolving]
  - Hepatic function abnormal [Unknown]
  - C-reactive protein increased [Unknown]
  - Serum ferritin increased [Unknown]
  - Acute kidney injury [Recovered/Resolved]
  - Blood creatinine increased [Unknown]
  - Anuria [Recovering/Resolving]

NARRATIVE: CASE EVENT DATE: 20240501
